FAERS Safety Report 18998129 (Version 1)
Quarter: 2021Q1

REPORT INFORMATION
  Report Type: Spontaneous
  Country: US (occurrence: US)
  Receive Date: 20210311
  Receipt Date: 20210311
  Transmission Date: 20210420
  Serious: Yes (Death, Other)
  Sender: FDA-Public Use
  Company Number: US-ABBVIE-17K-163-3080943-00

PATIENT

DRUGS (3)
  1. IBRUTINIB [Suspect]
     Active Substance: IBRUTINIB
     Indication: CHRONIC LYMPHOCYTIC LEUKAEMIA
     Route: 048
  2. UBLITUXIMAB [Suspect]
     Active Substance: UBLITUXIMAB
     Indication: PRODUCT USED FOR UNKNOWN INDICATION
     Dosage: D1,8,15 OF CYCLE 1. D1 OF CYCLE 2?6 AND Q3 CYCLES THEREAFTER
     Route: 042
  3. UBLITUXIMAB [Suspect]
     Active Substance: UBLITUXIMAB
     Dosage: D1,8,15 OF CYCLE 1. D1 OF CYCLE 2?6 AND Q3 CYCLES THEREAFTER
     Route: 042

REACTIONS (16)
  - Fatigue [Unknown]
  - Pneumonia [Unknown]
  - Pneumocystis jirovecii pneumonia [Fatal]
  - Contusion [Unknown]
  - Cardiac arrest [Fatal]
  - Febrile neutropenia [Unknown]
  - Neutropenia [Unknown]
  - Death [Fatal]
  - Cerebral infarction [Fatal]
  - Anaemia [Unknown]
  - Atrial fibrillation [Unknown]
  - Haemorrhage intracranial [Fatal]
  - Diarrhoea [Unknown]
  - Myalgia [Unknown]
  - Dizziness [Unknown]
  - Sepsis [Unknown]
